FAERS Safety Report 14349911 (Version 1)
Quarter: 2018Q1

REPORT INFORMATION
  Report Type: Spontaneous
  Country: US (occurrence: US)
  Receive Date: 20180103
  Receipt Date: 20180103
  Transmission Date: 20180509
  Serious: No
  Sender: FDA-Public Use
  Company Number: None

PATIENT
  Age: 35 Year
  Sex: Female
  Weight: 57.15 kg

DRUGS (1)
  1. MESALAMINE. [Suspect]
     Active Substance: MESALAMINE
     Indication: CROHN^S DISEASE
     Dosage: ?          QUANTITY:360 TABLET(S);OTHER FREQUENCY:2 TWICE/DAY;?
     Route: 048
     Dates: start: 20171231, end: 20180102

REACTIONS (8)
  - Muscle spasms [None]
  - Product taste abnormal [None]
  - Drug ineffective [None]
  - Arthralgia [None]
  - Gastrooesophageal reflux disease [None]
  - Diarrhoea [None]
  - Product substitution issue [None]
  - Haematochezia [None]

NARRATIVE: CASE EVENT DATE: 20171231
